FAERS Safety Report 13966436 (Version 1)
Quarter: 2017Q3

REPORT INFORMATION
  Report Type: Spontaneous
  Country: FR (occurrence: FR)
  Receive Date: 20170913
  Receipt Date: 20170913
  Transmission Date: 20171128
  Serious: Yes (Death)
  Sender: FDA-Public Use
  Company Number: FR-MERCK KGAA-2026105

PATIENT
  Age: 39 Year
  Sex: Female

DRUGS (4)
  1. ESOMEPRAZOLE MYLAN [Suspect]
     Active Substance: ESOMEPRAZOLE
     Route: 048
     Dates: start: 20170728, end: 20170823
  2. NOVOTHYROX [Suspect]
     Active Substance: LEVOTHYROXINE SODIUM
     Route: 048
     Dates: start: 20170628, end: 20170823
  3. NOVOTHYROX [Suspect]
     Active Substance: LEVOTHYROXINE SODIUM
     Indication: HYPOTHYROIDISM
     Route: 048
     Dates: start: 20170628, end: 20170823
  4. SODIUM ALGINATE W/SODIUM BICARBONATE [Suspect]
     Active Substance: SODIUM ALGINATE\SODIUM BICARBONATE
     Route: 048
     Dates: start: 20170728, end: 20170823

REACTIONS (2)
  - Pulmonary oedema [Fatal]
  - Death [Fatal]

NARRATIVE: CASE EVENT DATE: 2017
